FAERS Safety Report 23539639 (Version 1)
Quarter: 2024Q1

REPORT INFORMATION
  Report Type: Spontaneous
  Country: US (occurrence: US)
  Receive Date: 20240219
  Receipt Date: 20240219
  Transmission Date: 20240410
  Serious: Yes (Other)
  Sender: FDA-Public Use
  Company Number: US-BRACCO-2023US05258

PATIENT
  Sex: Female

DRUGS (5)
  1. ISOVUE 370 [Suspect]
     Active Substance: IOPAMIDOL
     Indication: Diagnostic procedure
     Dosage: 75 ML, SINGLE
     Route: 042
     Dates: start: 20230927, end: 20230927
  2. PREDNISONE [Concomitant]
     Active Substance: PREDNISONE
     Dosage: 50 MG AT 13 HOURS BEFORE CONTRAST
     Route: 048
     Dates: start: 20230927, end: 20230927
  3. PREDNISONE [Concomitant]
     Active Substance: PREDNISONE
     Dosage: 50 MG  AT 7 HOURS BEFORE CONTRAST
     Route: 048
     Dates: start: 20230927, end: 20230927
  4. PREDNISONE [Concomitant]
     Active Substance: PREDNISONE
     Dosage: 50 MG  AT 1 HOUR BEFORE CONTRAST
     Route: 048
     Dates: start: 20230927, end: 20230927
  5. BENADRYL [Concomitant]
     Active Substance: DIPHENHYDRAMINE HYDROCHLORIDE
     Dosage: 50 MG  AT 1 HOUR BEFORE CONTRAST
     Route: 048
     Dates: start: 20230927, end: 20230927

REACTIONS (2)
  - Rash [Recovered/Resolved]
  - Urticaria [Recovered/Resolved]

NARRATIVE: CASE EVENT DATE: 20230927
